FAERS Safety Report 6680054-2 (Version None)
Quarter: 2010Q2

REPORT INFORMATION
  Report Type: 
  Country: None (occurrence: None)
  Receive Date: 20100413
  Receipt Date: 20100412
  Transmission Date: 20101027
  Serious: Yes (Other)
  Sender: FDA-Public Use
  Company Number: CHPA2010SE06502

PATIENT
  Sex: Female

DRUGS (5)
  1. RESYL (NCH) [Suspect]
     Indication: COUGH
     Dosage: 1 DF, QD
     Route: 048
  2. ALENDRONATE SODIUM [Concomitant]
     Dosage: UNK,UNK
  3. CORTISONE [Concomitant]
     Dosage: 5 MG, QD
  4. ENALAPRIL MALEATE [Concomitant]
     Dosage: UNK,UNK
  5. LOVAZA [Concomitant]
     Dosage: UNK,UNK

REACTIONS (5)
  - ERYTHEMA [None]
  - HYPERSENSITIVITY [None]
  - OXYGEN SATURATION DECREASED [None]
  - PHARYNGEAL OEDEMA [None]
  - SENSATION OF FOREIGN BODY [None]
